FAERS Safety Report 24729585 (Version 2)
Quarter: 2024Q4

REPORT INFORMATION
  Report Type: Report from Study
  Country: DE (occurrence: DE)
  Receive Date: 20241213
  Receipt Date: 20241215
  Transmission Date: 20250115
  Serious: Yes (Death)
  Sender: ABBVIE
  Company Number: DE-ABBVIE-6043888

PATIENT
  Age: 79 Year
  Sex: Male

DRUGS (1)
  1. FOSCARBIDOPA\FOSLEVODOPA [Suspect]
     Active Substance: FOSCARBIDOPA\FOSLEVODOPA
     Indication: Parkinson^s disease
     Dosage: CRL: 0.22 ML/H; CR: 0.49 ML/H; CRH: 0.51 ML/H; ED: 0.15 ML LAST ADMIN DATE: 2024
     Route: 058
     Dates: start: 20240429

REACTIONS (1)
  - Death [Fatal]

NARRATIVE: CASE EVENT DATE: 20241204
